FAERS Safety Report 19306994 (Version 3)
Quarter: 2021Q3

REPORT INFORMATION
  Report Type: Report from Study
  Country: CA (occurrence: CA)
  Receive Date: 20210526
  Receipt Date: 20210824
  Transmission Date: 20211014
  Serious: Yes (Other)
  Sender: FDA-Public Use
  Company Number: PHHY2018CA014392

PATIENT
  Age: 43 Year
  Sex: Female

DRUGS (21)
  1. XOLAIR [Suspect]
     Active Substance: OMALIZUMAB
     Dosage: 300 MG, EVERY WEEKS
     Route: 058
     Dates: start: 20190411
  2. XOLAIR [Suspect]
     Active Substance: OMALIZUMAB
     Indication: CHRONIC SPONTANEOUS URTICARIA
     Dosage: 300 MG, EVERY 4 WEEKS
     Route: 058
     Dates: start: 20180726
  3. XOLAIR [Suspect]
     Active Substance: OMALIZUMAB
     Dosage: 300 MG, QMO
     Route: 058
  4. XOLAIR [Suspect]
     Active Substance: OMALIZUMAB
     Dosage: 300 MG, ONCE EVERY THREE WEEKS
     Route: 058
  5. VENTOLIN [Concomitant]
     Active Substance: ALBUTEROL SULFATE
     Indication: PRODUCT USED FOR UNKNOWN INDICATION
     Dosage: 2 DF, QID
     Route: 055
     Dates: start: 2012
  6. XOLAIR [Suspect]
     Active Substance: OMALIZUMAB
     Dosage: 300 MG, EVERY 4 WEEKS
     Route: 058
     Dates: start: 20190314
  7. XOLAIR [Suspect]
     Active Substance: OMALIZUMAB
     Dosage: 300 MG, EVERY 4 WEEKS
     Route: 058
     Dates: start: 20190314
  8. SYMBICORT [Concomitant]
     Active Substance: BUDESONIDE\FORMOTEROL FUMARATE DIHYDRATE
     Indication: PRODUCT USED FOR UNKNOWN INDICATION
     Dosage: 2 DF, BID
     Route: 048
     Dates: start: 2012
  9. CLINDAMYCIN. [Suspect]
     Active Substance: CLINDAMYCIN
     Indication: PRODUCT USED FOR UNKNOWN INDICATION
     Dosage: UNK
     Route: 065
  10. XOLAIR [Suspect]
     Active Substance: OMALIZUMAB
     Indication: CHRONIC SPONTANEOUS URTICARIA
     Dosage: 300 MG, EVERY 4 WEEKS
     Route: 058
     Dates: start: 20180501
  11. XOLAIR [Suspect]
     Active Substance: OMALIZUMAB
     Dosage: 300 MG, EVERY 4 WEEKS
     Route: 058
     Dates: start: 20181211
  12. XOLAIR [Suspect]
     Active Substance: OMALIZUMAB
     Dosage: 300 MG, EVERY 4 WEEKS
     Route: 058
     Dates: start: 20190603
  13. XOLAIR [Suspect]
     Active Substance: OMALIZUMAB
     Dosage: 300 MG, EVERY 4 WEEKS
     Route: 058
     Dates: start: 20190628
  14. XOLAIR [Suspect]
     Active Substance: OMALIZUMAB
     Dosage: 300 MG, EVERY 3 WEEKS
     Route: 058
  15. IBUPROFEN. [Suspect]
     Active Substance: IBUPROFEN
     Indication: PRODUCT USED FOR UNKNOWN INDICATION
     Dosage: UNK
     Route: 065
  16. MOMETASONE FUROATE. [Concomitant]
     Active Substance: MOMETASONE FUROATE
     Indication: PRODUCT USED FOR UNKNOWN INDICATION
     Dosage: 1 DF, QID
     Route: 061
     Dates: start: 201710
  17. PREDNISONE. [Concomitant]
     Active Substance: PREDNISONE
     Indication: PRODUCT USED FOR UNKNOWN INDICATION
     Dosage: UNK
     Route: 065
  18. XOLAIR [Suspect]
     Active Substance: OMALIZUMAB
     Dosage: 300 MG, 4 WEEKS
     Route: 058
     Dates: start: 20190823
  19. XOLAIR [Suspect]
     Active Substance: OMALIZUMAB
     Dosage: UNK
     Route: 065
     Dates: start: 20210506
  20. XOLAIR [Suspect]
     Active Substance: OMALIZUMAB
     Dosage: 300 MG, EVERY 4 WEEKS
     Route: 058
     Dates: start: 20191115
  21. REACTINE [Concomitant]
     Indication: PRODUCT USED FOR UNKNOWN INDICATION
     Dosage: 1 DF, QID
     Route: 048
     Dates: start: 2011

REACTIONS (34)
  - Visual impairment [Unknown]
  - Hypoaesthesia [Recovering/Resolving]
  - Pruritus [Unknown]
  - Arthralgia [Not Recovered/Not Resolved]
  - Inappropriate schedule of product administration [Unknown]
  - Furuncle [Unknown]
  - Injection site swelling [Recovering/Resolving]
  - Sinusitis [Unknown]
  - Dry eye [Not Recovered/Not Resolved]
  - Pharyngitis [Unknown]
  - Injection site mass [Unknown]
  - Head discomfort [Unknown]
  - Peripheral swelling [Unknown]
  - Rash macular [Unknown]
  - Injection site pruritus [Recovering/Resolving]
  - Injection site urticaria [Recovered/Resolved]
  - Migraine [Not Recovered/Not Resolved]
  - Feeling abnormal [Unknown]
  - Injection site erythema [Recovering/Resolving]
  - Injection site warmth [Recovering/Resolving]
  - Pain in extremity [Unknown]
  - Headache [Not Recovered/Not Resolved]
  - Localised infection [Unknown]
  - Urticaria pressure [Unknown]
  - Drug hypersensitivity [Unknown]
  - Acne cystic [Not Recovered/Not Resolved]
  - Limb injury [Unknown]
  - Back pain [Unknown]
  - Pain [Not Recovered/Not Resolved]
  - Urticaria [Unknown]
  - Blindness [Unknown]
  - Paranasal sinus hypersecretion [Unknown]
  - Ear infection [Unknown]
  - Injection site inflammation [Unknown]

NARRATIVE: CASE EVENT DATE: 20190906
